FAERS Safety Report 10273384 (Version 1)
Quarter: 2014Q2

REPORT INFORMATION
  Report Type: Spontaneous
  Country: US (occurrence: None)
  Receive Date: 20140630
  Receipt Date: 20140630
  Transmission Date: 20141212
  Serious: Yes (Hospitalization)
  Sender: FDA-Public Use
  Company Number: AUR-APU-2014-06692

PATIENT
  Sex: Male
  Weight: 70.3 kg

DRUGS (3)
  1. AMOXICILLIN AND CLAVULANATE POTASSIUM [Suspect]
     Indication: SINUSITIS
     Dates: start: 20140408
  2. NORVASC (AMLODIPINE BESILATE) [Concomitant]
  3. CRESTOR (ROSUVASTATIN CALCIUM) [Concomitant]

REACTIONS (3)
  - Gastrointestinal disorder [None]
  - Diarrhoea [None]
  - Diverticulitis [None]
